FAERS Safety Report 19169925 (Version 1)
Quarter: 2021Q2

REPORT INFORMATION
  Report Type: Report from Study
  Country: US (occurrence: US)
  Receive Date: 20210422
  Receipt Date: 20210422
  Transmission Date: 20210717
  Serious: Yes (Life-Threatening, Hospitalization, Congenital Anomaly)
  Sender: FDA-Public Use
  Company Number: US-TEVA-2021-US-1902968

PATIENT

DRUGS (4)
  1. TOFACITINIB [Suspect]
     Active Substance: TOFACITINIB
     Indication: PRODUCT USED FOR UNKNOWN INDICATION
     Route: 064
  2. HYDROXYCHLOROQUINE [Suspect]
     Active Substance: HYDROXYCHLOROQUINE
     Indication: PRODUCT USED FOR UNKNOWN INDICATION
     Route: 064
  3. SULFASALAZINE. [Suspect]
     Active Substance: SULFASALAZINE
     Indication: PRODUCT USED FOR UNKNOWN INDICATION
     Route: 064
  4. PREDNISONE. [Suspect]
     Active Substance: PREDNISONE
     Indication: PRODUCT USED FOR UNKNOWN INDICATION
     Route: 064

REACTIONS (9)
  - Foetal exposure during pregnancy [Unknown]
  - Hydrocele [Unknown]
  - Prominent epicanthal folds [Unknown]
  - Diastasis recti abdominis [Unknown]
  - Haemangioma congenital [Unknown]
  - Micrognathia [Unknown]
  - Pneumothorax [Unknown]
  - Anomaly of external ear congenital [Unknown]
  - Plagiocephaly [Unknown]
